FAERS Safety Report 14568223 (Version 1)
Quarter: 2018Q1

REPORT INFORMATION
  Report Type: Spontaneous
  Country: IN (occurrence: IN)
  Receive Date: 20180223
  Receipt Date: 20180223
  Transmission Date: 20180509
  Serious: Yes (Death, Hospitalization)
  Sender: FDA-Public Use
  Company Number: IN-BAYER-2018-030951

PATIENT
  Age: 17 Year
  Sex: Female
  Weight: 35 kg

DRUGS (1)
  1. GADOVIST [Suspect]
     Active Substance: GADOBUTROL
     Dosage: 3 ML, ONCE

REACTIONS (3)
  - Death [Fatal]
  - Rash generalised [None]
  - Rash generalised [None]

NARRATIVE: CASE EVENT DATE: 20180210
